FAERS Safety Report 20042031 (Version 1)
Quarter: 2021Q4

REPORT INFORMATION
  Report Type: Spontaneous
  Country: US (occurrence: US)
  Receive Date: 20211108
  Receipt Date: 20211108
  Transmission Date: 20220303
  Serious: No
  Sender: FDA-Public Use
  Company Number: US-ORGANON-O2110USA002301

PATIENT
  Age: 40 Year
  Sex: Female
  Weight: 79.37 kg

DRUGS (2)
  1. GANIRELIX ACETATE [Suspect]
     Active Substance: GANIRELIX ACETATE
     Indication: Infertility
     Dosage: STRENGTH 250MCG/.5ML
     Route: 030
     Dates: start: 20211016
  2. FOLLISTIM [Concomitant]
     Active Substance: FOLLITROPIN
     Dosage: UNK

REACTIONS (2)
  - Injection site pain [Recovered/Resolved]
  - Incorrect route of product administration [Unknown]

NARRATIVE: CASE EVENT DATE: 20211021
